FAERS Safety Report 11421204 (Version 1)
Quarter: 2015Q3

REPORT INFORMATION
  Report Type: Spontaneous
  Country: US (occurrence: US)
  Receive Date: 20150826
  Receipt Date: 20150826
  Transmission Date: 20151125
  Serious: Yes (Other)
  Sender: FDA-Public Use
  Company Number: US-UNICHEM LABORATORIES LIMITED-UCM201508-000699

PATIENT
  Age: 54 Year
  Sex: Male
  Weight: 106.6 kg

DRUGS (1)
  1. HYDROCHLOROTHIAZIDE. [Suspect]
     Active Substance: HYDROCHLOROTHIAZIDE
     Indication: HYPERTENSION

REACTIONS (3)
  - Rectal haemorrhage [Not Recovered/Not Resolved]
  - Mouth haemorrhage [Recovered/Resolved with Sequelae]
  - Epistaxis [Recovered/Resolved with Sequelae]
